FAERS Safety Report 7994775-2 (Version None)
Quarter: 2011Q4

REPORT INFORMATION
  Report Type: 
  Country: None (occurrence: None)
  Receive Date: 20111220
  Receipt Date: 20111212
  Transmission Date: 20120403
  Serious: Yes (Other)
  Sender: FDA-Public Use
  Company Number: US-SANOFI-AVENTIS-2011SA082232

PATIENT
  Sex: Female

DRUGS (2)
  1. TAXOTERE [Suspect]
     Indication: BREAST CANCER
     Dates: start: 20110201, end: 20110201
  2. TAXOTERE [Suspect]
     Dates: start: 20110621, end: 20110621

REACTIONS (4)
  - HYPERSENSITIVITY [None]
  - SYSTEMIC SCLEROSIS [None]
  - MUSCULOSKELETAL PAIN [None]
  - SKIN HYPERTROPHY [None]
